FAERS Safety Report 21170541 (Version 2)
Quarter: 2022Q3

REPORT INFORMATION
  Report Type: Report from Study
  Country: CA (occurrence: CA)
  Receive Date: 20220804
  Receipt Date: 20220825
  Transmission Date: 20221027
  Serious: Yes (Other)
  Sender: FDA-Public Use
  Company Number: CA-JNJFOC-20220757460

PATIENT
  Age: 37 Year
  Sex: Female
  Weight: 111 kg

DRUGS (2)
  1. STELARA [Suspect]
     Active Substance: USTEKINUMAB
     Indication: Crohn^s disease
     Route: 058
     Dates: start: 20220520, end: 20220718
  2. STELARA [Suspect]
     Active Substance: USTEKINUMAB

REACTIONS (6)
  - Urticaria [Not Recovered/Not Resolved]
  - Haemorrhage subcutaneous [Not Recovered/Not Resolved]
  - Hypersensitivity [Unknown]
  - Throat irritation [Unknown]
  - Pharyngeal swelling [Unknown]
  - Dermatitis [Unknown]

NARRATIVE: CASE EVENT DATE: 20220101
